FAERS Safety Report 16070397 (Version 9)
Quarter: 2019Q3

REPORT INFORMATION
  Report Type: Spontaneous
  Country: JP (occurrence: JP)
  Receive Date: 20190314
  Receipt Date: 20190710
  Transmission Date: 20191004
  Serious: Yes (Life-Threatening, Hospitalization, Other)
  Sender: FDA-Public Use
  Company Number: JP-ROCHE-2276109

PATIENT
  Age: 26 Year
  Sex: Female
  Weight: 33 kg

DRUGS (39)
  1. ACELIO [Concomitant]
     Active Substance: ACETAMINOPHEN
     Indication: OFF LABEL USE
     Dosage: TOTAL DOSE:0.5V
     Route: 042
  2. HUMULIN R [Concomitant]
     Active Substance: INSULIN HUMAN
     Indication: OFF LABEL USE
     Dosage: TOTAL DOSE:0.15V
     Route: 041
  3. KN NO.1 [Concomitant]
     Indication: OFF LABEL USE
     Dosage: DOSAGE IS UNCERTAIN.
     Route: 065
  4. HUMAN RED BLOOD CELLS [Concomitant]
     Active Substance: HUMAN RED BLOOD CELL
     Indication: OFF LABEL USE
     Dosage: DOSAGE IS UNCERTAIN.
     Route: 065
  5. PRIMPERAN [Concomitant]
     Active Substance: METOCLOPRAMIDE HYDROCHLORIDE
     Indication: OFF LABEL USE
     Dosage: DOSAGE IS UNCERTAIN.
     Route: 065
  6. SOLU-MEDROL [Concomitant]
     Active Substance: METHYLPREDNISOLONE SODIUM SUCCINATE
     Indication: OFF LABEL USE
     Dosage: DOSAGE IS UNCERTAIN.
     Route: 042
  7. VANCOMYCIN HYDROCHLORIDE. [Concomitant]
     Active Substance: VANCOMYCIN HYDROCHLORIDE
     Indication: OFF LABEL USE
     Dosage: TOTAL DOSE:4.5V
     Route: 042
  8. LASIX [Concomitant]
     Active Substance: FUROSEMIDE
     Indication: OFF LABEL USE
     Dosage: DOSAGE IS UNCERTAIN.
     Route: 065
  9. ACTEMRA [Suspect]
     Active Substance: TOCILIZUMAB
     Indication: CYTOKINE RELEASE SYNDROME
     Dosage: ON 06/MAR/2019, RECEIVED MOST RECENT DOSE OF TOCILIZUMAB
     Route: 042
     Dates: start: 20190222, end: 20190306
  10. SERENACE [Concomitant]
     Active Substance: HALOPERIDOL
     Indication: OFF LABEL USE
     Dosage: DOSAGE IS UNCERTAIN.
     Route: 041
  11. OXIFAST [Concomitant]
     Active Substance: OXYCODONE
     Indication: OFF LABEL USE
     Dosage: DOSAGE IS UNCERTAIN.
     Route: 065
  12. SODIUM PHOSPHATE [Concomitant]
     Active Substance: SODIUM PHOSPHATE
     Indication: OFF LABEL USE
     Dosage: TOTAL DOSE:1.5A
     Route: 042
  13. YD SOLITA T NO.3 [Concomitant]
     Indication: OFF LABEL USE
     Dosage: DOSAGE IS UNCERTAIN.
     Route: 065
  14. ALBUMINE [Concomitant]
     Active Substance: ALBUMIN HUMAN
     Indication: OFF LABEL USE
     Dosage: TOTAL DOSE:2V
     Route: 042
  15. PREDONINE [Concomitant]
     Active Substance: PREDNISOLONE
     Indication: OFF LABEL USE
     Dosage: TOTAL DOSE:2A
     Route: 042
  16. CUBICIN [Concomitant]
     Active Substance: DAPTOMYCIN
     Indication: OFF LABEL USE
     Dosage: DOSAGE IS UNCERTAIN.
     Route: 042
  17. AMIPAREN [Concomitant]
     Active Substance: AMINO ACIDS
     Indication: OFF LABEL USE
     Dosage: DOSAGE IS UNCERTAIN.
     Route: 065
  18. KETALAR [Concomitant]
     Active Substance: KETAMINE HYDROCHLORIDE
     Indication: OFF LABEL USE
     Dosage: DOSAGE IS UNCERTAIN.
     Route: 042
  19. OMEPRAZOLE SODIUM [Concomitant]
     Active Substance: OMEPRAZOLE SODIUM
     Indication: OFF LABEL USE
     Dosage: DOSAGE IS UNCERTAIN.
     Route: 065
  20. DEXART [Concomitant]
     Active Substance: DEXAMETHASONE SODIUM PHOSPHATE
     Indication: OFF LABEL USE
     Dosage: DOSAGE IS UNCERTAIN.
     Route: 065
  21. ACTEMRA [Suspect]
     Active Substance: TOCILIZUMAB
     Indication: OFF LABEL USE
  22. E KEPPRA [Concomitant]
     Active Substance: LEVETIRACETAM
     Indication: OFF LABEL USE
     Dosage: TOTAL DOSE:9V
     Route: 041
  23. SERENACE [Concomitant]
     Active Substance: HALOPERIDOL
     Dosage: TOTAL DOSE:1A
     Route: 041
  24. MEYLON [Concomitant]
     Active Substance: SODIUM BICARBONATE
     Indication: OFF LABEL USE
     Dosage: DOSAGE IS UNCERTAIN.
     Route: 042
  25. NEOPHAGEN C [Concomitant]
     Indication: OFF LABEL USE
     Dosage: TOTAL DOSE:2DF
     Route: 042
  26. PROGRAF [Concomitant]
     Active Substance: TACROLIMUS\TACROLIMUS ANHYDROUS
     Indication: OFF LABEL USE
     Dosage: TOTAL DOSE:0.2A
     Route: 041
  27. GASTER [FAMOTIDINE] [Concomitant]
     Indication: OFF LABEL USE
     Dosage: TOTAL DOSE:2A
     Route: 042
  28. NEORESTAR [Concomitant]
     Active Substance: CHLORPHENIRAMINE MALEATE
     Indication: OFF LABEL USE
     Dosage: TOTAL DOSE:2A
     Route: 042
  29. CEFEPIME DIHYDROCHLORIDE [Concomitant]
     Active Substance: CEFEPIME HYDROCHLORIDE
     Indication: OFF LABEL USE
     Dosage: DOSAGE IS UNCERTAIN.
     Route: 042
  30. ROPION [Concomitant]
     Active Substance: FLURBIPROFEN AXETIL
     Indication: OFF LABEL USE
     Dosage: DOSAGE IS UNCERTAIN.
     Route: 042
  31. SODIUM CHLORIDE. [Concomitant]
     Active Substance: SODIUM CHLORIDE
     Indication: OFF LABEL USE
     Dosage: DOSAGE IS UNCERTAIN.
     Route: 065
  32. FILGRASTIM BIOSIMILAR 1 [Concomitant]
     Active Substance: FILGRASTIM
     Indication: OFF LABEL USE
     Dosage: DOSAGE IS UNCERTAIN.
     Route: 065
  33. TEICOPLANIN [Concomitant]
     Active Substance: TEICOPLANIN
     Indication: OFF LABEL USE
     Dosage: DOSAGE IS UNCERTAIN.
     Route: 065
  34. AMBISOME [AMPHOTERICIN B] [Concomitant]
     Indication: OFF LABEL USE
     Dosage: TOTAL DOSE:4V
     Route: 041
  35. MEDLENIK [Concomitant]
     Active Substance: CUPRIC SULFATE\FERRIC CHLORIDE\MANGANESE CHLORIDE\POTASSIUM IODIDE\ZINC SULFATE
     Indication: OFF LABEL USE
     Dosage: TOTAL DOSE:2A
     Route: 042
  36. PLATELETS [Concomitant]
     Active Substance: HUMAN PLATELET, ALLOGENIC
     Indication: OFF LABEL USE
     Dosage: TOTAL DOSE:20U
     Route: 041
  37. GAMMAGARD [Concomitant]
     Active Substance: HUMAN IMMUNOGLOBULIN G
     Indication: OFF LABEL USE
     Dosage: TOTAL DOSE:2V
     Route: 042
  38. WASSERTROL [Concomitant]
     Indication: OFF LABEL USE
     Dosage: DOSAGE IS UNCERTAIN.
     Route: 065
  39. FINIBAX [Concomitant]
     Active Substance: DORIPENEM MONOHYDRATE
     Indication: OFF LABEL USE
     Dosage: TOTAL DOSE:5V
     Route: 041

REACTIONS (9)
  - Off label use [Unknown]
  - Febrile neutropenia [Unknown]
  - Encephalitis [Unknown]
  - Intentional product use issue [Unknown]
  - Pancytopenia [Recovering/Resolving]
  - Meningitis [Unknown]
  - Nervous system disorder [Not Recovered/Not Resolved]
  - Respiratory failure [Not Recovered/Not Resolved]
  - Renal impairment [Unknown]

NARRATIVE: CASE EVENT DATE: 20190227
